FAERS Safety Report 9801659 (Version 2)
Quarter: 2014Q1

REPORT INFORMATION
  Report Type: Spontaneous
  Country: US (occurrence: US)
  Receive Date: 20140107
  Receipt Date: 20140116
  Transmission Date: 20141002
  Serious: Yes (Other)
  Sender: FDA-Public Use
  Company Number: US-PERRIGO-13US013391

PATIENT
  Age: 25 Year
  Sex: Female

DRUGS (1)
  1. ACETAMINOPHEN-ASPIRIN-CAFFEINE 1T1 [Suspect]
     Indication: PRODUCT USED FOR UNKNOWN INDICATION
     Dosage: TWO CAPLETS, SINGLE
     Route: 048
     Dates: start: 20131215

REACTIONS (9)
  - Pharyngeal oedema [Unknown]
  - Lip swelling [Unknown]
  - Eye swelling [Unknown]
  - Diarrhoea [Unknown]
  - Nausea [Unknown]
  - Burning sensation [Unknown]
  - Pruritus [Unknown]
  - Rash [Unknown]
  - Swelling [Unknown]
